FAERS Safety Report 24157484 (Version 1)
Quarter: 2024Q3

REPORT INFORMATION
  Report Type: Spontaneous
  Country: JP (occurrence: JP)
  Receive Date: 20240731
  Receipt Date: 20240731
  Transmission Date: 20241017
  Serious: Yes (Other)
  Sender: ARGENX BVBA
  Company Number: JP-ARGENX-2024-ARGX-JP005061

PATIENT

DRUGS (1)
  1. EFGARTIGIMOD ALFA\HYALURONIDASE-QVFC [Suspect]
     Active Substance: EFGARTIGIMOD ALFA\HYALURONIDASE-QVFC
     Indication: Myasthenia gravis
     Dosage: UNK
     Route: 058
     Dates: start: 20240606, end: 20240625

REACTIONS (3)
  - Heavy menstrual bleeding [Recovered/Resolved]
  - Infection [Recovered/Resolved]
  - Physical deconditioning [Unknown]

NARRATIVE: CASE EVENT DATE: 20240624
